FAERS Safety Report 17605877 (Version 2)
Quarter: 2020Q2

REPORT INFORMATION
  Report Type: Report from Study
  Country: US (occurrence: US)
  Receive Date: 20200331
  Receipt Date: 20200604
  Transmission Date: 20200713
  Serious: Yes (Other)
  Sender: FDA-Public Use
  Company Number: US-JNJFOC-20200331221

PATIENT
  Sex: Female

DRUGS (1)
  1. SIMPONI [Suspect]
     Active Substance: GOLIMUMAB
     Indication: CROHN^S DISEASE
     Route: 058

REACTIONS (5)
  - Product use in unapproved indication [Unknown]
  - Product dose omission [Unknown]
  - Gastrointestinal stoma complication [Recovered/Resolved]
  - Off label use [Unknown]
  - Fatigue [Recovered/Resolved]
